FAERS Safety Report 5145366-2 (Version None)
Quarter: 2006Q4

REPORT INFORMATION
  Report Type: 
  Country: None (occurrence: None)
  Receive Date: 20061101
  Receipt Date: 20061020
  Transmission Date: 20070319
  Serious: Yes (Other)
  Sender: FDA-Public Use
  Company Number: TCI2006A04783

PATIENT
  Sex: Male

DRUGS (2)
  1. ACTOS [Suspect]
     Indication: BLOOD GLUCOSE INCREASED
     Dosage: PER ORAL
     Route: 048
     Dates: start: 20050401, end: 20061001
  2. AMARYL [Suspect]
     Indication: DRUG USE FOR UNKNOWN INDICATION
     Dosage: PER ORAL
     Route: 048

REACTIONS (1)
  - RHABDOMYOLYSIS [None]
